FAERS Safety Report 6050192-6 (Version None)
Quarter: 2009Q1

REPORT INFORMATION
  Report Type: 
  Country: None (occurrence: None)
  Receive Date: 20090121
  Receipt Date: 20090113
  Transmission Date: 20090719
  Serious: Yes (Hospitalization)
  Sender: FDA-Public Use
  Company Number: 2008SP025681

PATIENT
  Sex: Male
  Weight: 84 kg

DRUGS (5)
  1. TEMOZOLOMIDE [Suspect]
     Indication: GLIOBLASTOMA
     Dosage: 35 MG;Q8H;PO
     Route: 048
     Dates: start: 20081027, end: 20081208
  2. DEXAMETHASONE SODIUM POSPHATE [Suspect]
     Indication: GLIOBLASTOMA
     Dosage: 1 MG;QD;PO
     Route: 048
     Dates: start: 20081117, end: 20081205
  3. IRINOTECAN HCL [Suspect]
     Indication: GLIOBLASTOMA
     Dosage: 230 MG; IV
     Route: 042
     Dates: start: 20081027, end: 20081201
  4. OMEPRAZOLE [Concomitant]
  5. ONDASETRON [Concomitant]

REACTIONS (9)
  - BACTERIA URINE IDENTIFIED [None]
  - DISEASE PROGRESSION [None]
  - FEBRILE NEUTROPENIA [None]
  - GASTRITIS [None]
  - GENERAL PHYSICAL HEALTH DETERIORATION [None]
  - GLIOBLASTOMA [None]
  - HEMIPARESIS [None]
  - HYPOKINESIA [None]
  - THROMBOCYTOPENIA [None]
